FAERS Safety Report 9219889 (Version 2)
Quarter: 2013Q2

REPORT INFORMATION
  Report Type: Spontaneous
  Country: JP (occurrence: None)
  Receive Date: 20130405
  Receipt Date: 20130506
  Transmission Date: 20140414
  Serious: Yes (Death)
  Sender: FDA-Public Use
  Company Number: JP-011340

PATIENT
  Age: 66 Year
  Sex: Male
  Weight: 60 kg

DRUGS (3)
  1. GONAX [Suspect]
     Indication: PROSTATE CANCER
     Route: 058
     Dates: start: 20130130, end: 20130131
  2. TAXOTERE [Concomitant]
  3. PREDNISOLONE [Concomitant]

REACTIONS (3)
  - Gastrointestinal haemorrhage [None]
  - Anaemia [None]
  - Shock haemorrhagic [None]
